FAERS Safety Report 16974788 (Version 1)
Quarter: 2019Q4

REPORT INFORMATION
  Report Type: Spontaneous
  Country: US (occurrence: US)
  Receive Date: 20190913
  Receipt Date: 20190913
  Transmission Date: 20200122
  Serious: No
  Sender: FDA-Public Use
  Company Number: None

PATIENT
  Age: 35 Year
  Sex: 0

DRUGS (1)
  1. BOTOX [Suspect]
     Active Substance: ONABOTULINUMTOXINA
     Route: 058
     Dates: start: 20190913

REACTIONS (2)
  - Product storage error [None]
  - Manufacturing product shipping issue [None]

NARRATIVE: CASE EVENT DATE: 20190913
